FAERS Safety Report 5965342-7 (Version None)
Quarter: 2008Q4

REPORT INFORMATION
  Report Type: 
  Country: None (occurrence: None)
  Receive Date: 20081121
  Receipt Date: 20081121
  Transmission Date: 20090506
  Serious: No
  Sender: FDA-Public Use
  Company Number: None

PATIENT
  Age: 25 Year
  Sex: Male

DRUGS (1)
  1. VARENICLINE [Suspect]
     Dates: start: 20071105

REACTIONS (1)
  - UNEVALUABLE EVENT [None]
